FAERS Safety Report 12853947 (Version 2)
Quarter: 2016Q4

REPORT INFORMATION
  Report Type: Report from Study
  Country: LT (occurrence: LT)
  Receive Date: 20161017
  Receipt Date: 20161215
  Transmission Date: 20170207
  Serious: Yes (Hospitalization, Other)
  Sender: FDA-Public Use
  Company Number: LT-B.I. PHARMACEUTICALS,INC./RIDGEFIELD-2016-BI-47851BI

PATIENT
  Age: 12 Year
  Sex: Male
  Weight: 61.5 kg

DRUGS (5)
  1. FRAXIPARINE [Suspect]
     Active Substance: NADROPARIN CALCIUM
     Dosage: 0.75ML ONCE DAILY AND 0.9ML ONCE DAILY
     Route: 058
     Dates: start: 20160720
  2. FRAXIPARINE [Suspect]
     Active Substance: NADROPARIN CALCIUM
     Dosage: 1.5 ML (0.3ML/2850 ANTI-XA UNIT)
     Route: 058
     Dates: end: 20160728
  3. FRAXIPARINE [Suspect]
     Active Substance: NADROPARIN CALCIUM
     Indication: ANTICOAGULANT THERAPY
     Dosage: INJECTION
     Route: 058
     Dates: start: 20160624, end: 20160714
  4. FRAXIPARINE [Suspect]
     Active Substance: NADROPARIN CALCIUM
     Dosage: INJECTION
     Route: 058
     Dates: start: 20160715, end: 20160719
  5. DABIGATRAN [Suspect]
     Active Substance: DABIGATRAN
     Indication: EMBOLISM VENOUS
     Route: 065

REACTIONS (4)
  - Tension headache [Recovered/Resolved]
  - Renal vein thrombosis [Not Recovered/Not Resolved]
  - Pelvic venous thrombosis [Not Recovered/Not Resolved]
  - Tension headache [Recovered/Resolved]

NARRATIVE: CASE EVENT DATE: 20160711
